FAERS Safety Report 8266112-X (Version None)
Quarter: 2012Q1

REPORT INFORMATION
  Report Type: 
  Country: None (occurrence: None)
  Receive Date: 20120327
  Receipt Date: 20100430
  Transmission Date: 20120608
  Serious: Yes (Other)
  Sender: FDA-Public Use
  Company Number: PHHY2010US28239

PATIENT
  Age: 74 Year
  Sex: Male
  Weight: 59.4 kg

DRUGS (6)
  1. GLEEVEC [Suspect]
     Indication: CHRONIC MYELOID LEUKAEMIA
     Dosage: 400;200 MG, DAILY, ORAL
     Route: 048
     Dates: start: 20100310, end: 20100405
  2. GLEEVEC [Suspect]
     Indication: CHRONIC MYELOID LEUKAEMIA
     Dosage: 400;200 MG, DAILY, ORAL
     Route: 048
     Dates: start: 20100425
  3. NEXIUM [Concomitant]
  4. ZOCOR [Concomitant]
  5. PROSCAR [Concomitant]
  6. METOPROLOL TARTRATE [Concomitant]

REACTIONS (5)
  - PLATELET COUNT DECREASED [None]
  - RED BLOOD CELL COUNT DECREASED [None]
  - OEDEMA PERIPHERAL [None]
  - EYE SWELLING [None]
  - MUSCLE SPASMS [None]
